FAERS Safety Report 6634376-1 (Version None)
Quarter: 2010Q1

REPORT INFORMATION
  Report Type: 
  Country: None (occurrence: None)
  Receive Date: 20100315
  Receipt Date: 20100304
  Transmission Date: 20100710
  Serious: Yes (Other)
  Sender: FDA-Public Use
  Company Number: JP-ROCHE-637928

PATIENT
  Sex: Female

DRUGS (13)
  1. TOCILIZUMAB [Suspect]
     Indication: RHEUMATOID ARTHRITIS
     Route: 041
     Dates: start: 20090226, end: 20090226
  2. TOCILIZUMAB [Suspect]
     Route: 041
     Dates: start: 20090319, end: 20090319
  3. TOCILIZUMAB [Suspect]
     Route: 041
     Dates: start: 20090416, end: 20090416
  4. TOCILIZUMAB [Suspect]
     Route: 041
     Dates: start: 20090514, end: 20090514
  5. TOCILIZUMAB [Suspect]
     Route: 041
     Dates: start: 20090824
  6. PREDNISOLONE [Concomitant]
     Dosage: FORM: PERORAL AGENT.
     Route: 048
  7. SELBEX [Concomitant]
     Dosage: FORM: PER ORAL AGENT.
     Route: 048
  8. KALIMATE [Concomitant]
     Route: 048
  9. NIFEDIPINE [Concomitant]
     Dosage: REPORTED DRUG: NIRENA L
     Route: 048
  10. INFREE [Concomitant]
     Route: 048
  11. FERROMIA [Concomitant]
     Dosage: FORM: PERORAL AGENT.
     Route: 048
  12. PYDOXAL [Concomitant]
     Route: 048
  13. ALOSENN [Concomitant]
     Route: 048

REACTIONS (2)
  - C-REACTIVE PROTEIN INCREASED [None]
  - CEREBRAL HAEMORRHAGE [None]
